FAERS Safety Report 18398118 (Version 1)
Quarter: 2020Q4

REPORT INFORMATION
  Report Type: Spontaneous
  Country: US (occurrence: US)
  Receive Date: 20201019
  Receipt Date: 20201019
  Transmission Date: 20210114
  Serious: Yes (Life-Threatening, Other)
  Sender: FDA-Public Use
  Company Number: None

PATIENT
  Age: 79 Year
  Sex: Female
  Weight: 76.8 kg

DRUGS (13)
  1. CEFTRIAXONE INJECTION [Concomitant]
     Active Substance: CEFTRIAXONE SODIUM
     Dates: start: 20201015
  2. REMDESIVIR. [Suspect]
     Active Substance: REMDESIVIR
     Indication: COVID-19 PNEUMONIA
     Dates: start: 20201015, end: 20201017
  3. DIPHENHYDRAMINE/ACETAMINOPHEN TABLET [Concomitant]
     Dates: start: 20201016
  4. EZETIMIBE TABLET [Concomitant]
  5. INSULIN LISPRO [Concomitant]
     Active Substance: INSULIN LISPRO
     Dates: start: 20201017
  6. LIDOCAINE 5% PATCH [Concomitant]
     Active Substance: LIDOCAINE
     Dates: start: 20201017
  7. MORPHINE INJECTION [Concomitant]
     Active Substance: MORPHINE
     Dates: start: 20201017
  8. ACETAMINOPHEN TABLET [Concomitant]
     Active Substance: ACETAMINOPHEN
     Dates: start: 20201016
  9. ONDANSETRON. [Concomitant]
     Active Substance: ONDANSETRON
     Dates: start: 20201017
  10. ENOXAPARIN [Concomitant]
     Active Substance: ENOXAPARIN
     Dates: start: 20201016
  11. LOPERAMIDE CAPSULE [Concomitant]
     Dates: start: 20201016
  12. AZITHROMYCIN INJECTION [Concomitant]
     Dates: start: 20201015, end: 20201017
  13. DEXAMETHASONE TABLET/INJECTION [Concomitant]
     Dates: start: 20201015

REACTIONS (2)
  - Acute kidney injury [None]
  - Hypovolaemia [None]

NARRATIVE: CASE EVENT DATE: 20201017
